FAERS Safety Report 7968273-6 (Version None)
Quarter: 2011Q4

REPORT INFORMATION
  Report Type: 
  Country: None (occurrence: None)
  Receive Date: 20111209
  Receipt Date: 20111206
  Transmission Date: 20120403
  Serious: Yes (Hospitalization)
  Sender: FDA-Public Use
  Company Number: PHEH2011US011067

PATIENT
  Age: 23 Year
  Sex: Male
  Weight: 63.492 kg

DRUGS (1)
  1. TOBI [Suspect]
     Dosage: 300 MG, BID FOR 28 DAYS ON, 28 DAYS OFF
     Dates: start: 20110527

REACTIONS (2)
  - UPPER RESPIRATORY TRACT INFECTION [None]
  - INFECTIVE PULMONARY EXACERBATION OF CYSTIC FIBROSIS [None]
